FAERS Safety Report 7995300-2 (Version None)
Quarter: 2011Q4

REPORT INFORMATION
  Report Type: 
  Country: None (occurrence: None)
  Receive Date: 20111220
  Receipt Date: 20111205
  Transmission Date: 20120403
  Serious: Yes (Hospitalization, Other)
  Sender: FDA-Public Use
  Company Number: PT-WATSON-2011-21494

PATIENT
  Age: 66 Year
  Sex: Male

DRUGS (3)
  1. MYCOPHENOLATE MEFETIL [Suspect]
     Indication: RENAL TRANSPLANT
     Dosage: UNK
     Route: 065
  2. PREDNISOLONE [Suspect]
     Indication: RENAL TRANSPLANT
  3. CYCLOSPORINE [Suspect]
     Indication: RENAL TRANSPLANT
     Dosage: UNK
     Route: 065

REACTIONS (7)
  - OEDEMA PERIPHERAL [None]
  - COMPLICATIONS OF TRANSPLANTED KIDNEY [None]
  - URINARY TRACT INFECTION [None]
  - RESPIRATORY DISTRESS [None]
  - CELLULITIS [None]
  - PSEUDOMONAS TEST POSITIVE [None]
  - DISSEMINATED CRYPTOCOCCOSIS [None]
